FAERS Safety Report 25397022 (Version 1)
Quarter: 2025Q2

REPORT INFORMATION
  Report Type: Spontaneous
  Country: CA (occurrence: CA)
  Receive Date: 20250604
  Receipt Date: 20250604
  Transmission Date: 20250716
  Serious: Yes (Other)
  Sender: AMGEN
  Company Number: CA-AMGEN-CANSP2025108060

PATIENT
  Age: 24 Year
  Sex: Male

DRUGS (1)
  1. INFLIXIMAB [Suspect]
     Active Substance: INFLIXIMAB
     Indication: Colitis ulcerative
     Route: 065

REACTIONS (7)
  - Clostridium difficile infection [Unknown]
  - C-reactive protein increased [Unknown]
  - Loss of therapeutic response [Unknown]
  - Haemorrhage [Unknown]
  - Acne [Unknown]
  - Pain [Unknown]
  - Diarrhoea [Unknown]
